FAERS Safety Report 22840981 (Version 4)
Quarter: 2023Q4

REPORT INFORMATION
  Report Type: Other
  Country: US (occurrence: None)
  Receive Date: 20230819
  Receipt Date: 20231214
  Transmission Date: 20240110
  Serious: Yes (Other)
  Sender: FDA-Public Use
  Company Number: US-ROCHE-3405413

PATIENT
  Age: 78 Year
  Sex: Female

DRUGS (4)
  1. ACTEMRA [Suspect]
     Active Substance: TOCILIZUMAB
     Indication: Giant cell arteritis
     Dosage: (0.9ML) X 0.000
     Route: 058
     Dates: start: 201909
  2. VITAMIN C [Concomitant]
     Active Substance: ASCORBIC ACID
     Dosage: IN THE MORNING
     Route: 048
  3. CALCIUM\VITAMIN D [Concomitant]
     Active Substance: CALCIUM\VITAMIN D
     Dosage: 600MG OF CALCIUM WITH 400IU/10MG OF VITAMIN D
     Route: 048
  4. ARTIFICIAL TEARS [Concomitant]

REACTIONS (17)
  - Cataract [Recovering/Resolving]
  - Eyelid ptosis [Recovered/Resolved]
  - Drug ineffective [Unknown]
  - Needle issue [Unknown]
  - Device malfunction [Unknown]
  - Product complaint [Unknown]
  - Erythema [Recovered/Resolved]
  - Visual impairment [Recovered/Resolved]
  - Dry eye [Recovered/Resolved]
  - Urticaria [Recovered/Resolved]
  - Haemorrhage subcutaneous [Unknown]
  - Pain [Not Recovered/Not Resolved]
  - Product expiration date issue [Unknown]
  - Device defective [Unknown]
  - Product communication issue [Unknown]
  - Drug delivery system malfunction [Unknown]
  - Blood cholesterol increased [Unknown]

NARRATIVE: CASE EVENT DATE: 20230101
